FAERS Safety Report 15013095 (Version 1)
Quarter: 2018Q2

REPORT INFORMATION
  Report Type: Spontaneous
  Country: PT (occurrence: PT)
  Receive Date: 20180614
  Receipt Date: 20180614
  Transmission Date: 20180711
  Serious: Yes (Other)
  Sender: FDA-Public Use
  Company Number: PT-GILEAD-2018-0343029

PATIENT
  Age: 52 Year
  Sex: Male

DRUGS (4)
  1. EFAVIRENZ/EMTRICITABINE/TENOFOVIR DF [Suspect]
     Active Substance: EFAVIRENZ\EMTRICITABINE\TENOFOVIR DISOPROXIL FUMARATE
     Indication: HIV INFECTION
     Dosage: 600/200/245MG, UNK
     Route: 065
     Dates: start: 201206
  2. ENTECAVIR. [Concomitant]
     Active Substance: ENTECAVIR
     Dosage: 1 MG, UNK
  3. EFAVIRENZ/EMTRICITABINE/TENOFOVIR DF [Suspect]
     Active Substance: EFAVIRENZ\EMTRICITABINE\TENOFOVIR DISOPROXIL FUMARATE
     Indication: HEPATITIS B
  4. ABACAVIR. [Concomitant]
     Active Substance: ABACAVIR
     Dosage: 300 MG, UNK

REACTIONS (3)
  - Drug ineffective for unapproved indication [Unknown]
  - Genotype drug resistance test positive [Unknown]
  - Drug interaction [Recovered/Resolved]
